FAERS Safety Report 7068779-0 (Version None)
Quarter: 2010Q4

REPORT INFORMATION
  Report Type: 
  Country: None (occurrence: None)
  Receive Date: 20101027
  Receipt Date: 20101027
  Transmission Date: 20110411
  Serious: Yes (Other)
  Sender: FDA-Public Use
  Company Number: None

PATIENT
  Age: 59 Year
  Sex: Female
  Weight: 87.0906 kg

DRUGS (1)
  1. RESTASIS [Suspect]
     Indication: DRY EYE
     Dosage: 1 DROP/EA EYE 2XDAILY OPHTHALMIC
     Route: 047
     Dates: start: 20100913, end: 20100916

REACTIONS (4)
  - CONJUNCTIVAL HAEMORRHAGE [None]
  - EYE PAIN [None]
  - EYE SWELLING [None]
  - HEADACHE [None]
